FAERS Safety Report 10307587 (Version 1)
Quarter: 2014Q3

REPORT INFORMATION
  Report Type: Spontaneous
  Country: IN (occurrence: None)
  Receive Date: 20140714
  Receipt Date: 20140714
  Transmission Date: 20150326
  Serious: Yes (Hospitalization)
  Sender: FDA-Public Use
  Company Number: None

PATIENT
  Age: 70 Year
  Sex: Male
  Weight: 78 kg

DRUGS (2)
  1. DUOLIN RESPULES, 2.5 ML CIPLA [Suspect]
     Active Substance: ALBUTEROL\IPRATROPIUM BROMIDE
     Indication: COUGH
     Dosage: THREE TIMES DAILY
     Route: 055
     Dates: start: 20140708, end: 20140708
  2. DUOLIN RESPULES, 2.5 ML CIPLA [Suspect]
     Active Substance: ALBUTEROL\IPRATROPIUM BROMIDE
     Indication: NASOPHARYNGITIS
     Dosage: THREE TIMES DAILY
     Route: 055
     Dates: start: 20140708, end: 20140708

REACTIONS (1)
  - Atrial fibrillation [None]

NARRATIVE: CASE EVENT DATE: 20140708
